FAERS Safety Report 11683051 (Version 3)
Quarter: 2015Q4

REPORT INFORMATION
  Report Type: Spontaneous
  Country: FR (occurrence: FR)
  Receive Date: 20151029
  Receipt Date: 20151221
  Transmission Date: 20160304
  Serious: Yes (Hospitalization)
  Sender: FDA-Public Use
  Company Number: FR-GE HEALTHCARE MEDICAL DIAGNOSTICS-OMPQ-PR-1510S-2875

PATIENT
  Age: 66 Year
  Sex: Male

DRUGS (17)
  1. NACL [Concomitant]
     Active Substance: SODIUM CHLORIDE
  2. LOVENOX [Concomitant]
     Active Substance: ENOXAPARIN SODIUM
  3. LASIX [Concomitant]
     Active Substance: FUROSEMIDE
  4. KARDEGIC [Concomitant]
     Active Substance: ASPIRIN LYSINE
  5. OMNIPAQUE [Suspect]
     Active Substance: IOHEXOL
     Indication: PROSTHESIS IMPLANTATION
     Route: 042
     Dates: start: 20150821, end: 20150821
  6. OMNIPAQUE [Suspect]
     Active Substance: IOHEXOL
     Indication: THERAPEUTIC PROCEDURE
  7. BACTRIM [Concomitant]
     Active Substance: SULFAMETHOXAZOLE\TRIMETHOPRIM
  8. HYDROXYZINE [Concomitant]
     Active Substance: HYDROXYZINE\HYDROXYZINE HYDROCHLORIDE
  9. EZETROL [Concomitant]
     Active Substance: EZETIMIBE
  10. LANSOPRAZOLE. [Concomitant]
     Active Substance: LANSOPRAZOLE
  11. CORTANCYL [Concomitant]
     Active Substance: PREDNISONE
  12. CIPROFLOXACIN. [Concomitant]
     Active Substance: CIPROFLOXACIN
     Dates: end: 20150828
  13. FORLAX [Concomitant]
     Active Substance: POLYETHYLENE GLYCOL 4000
  14. OMNIPAQUE [Suspect]
     Active Substance: IOHEXOL
     Indication: AORTIC BYPASS
  15. OMNIPAQUE [Suspect]
     Active Substance: IOHEXOL
     Indication: DIAGNOSTIC PROCEDURE
  16. CEFTRIAXONE. [Concomitant]
     Active Substance: CEFTRIAXONE
     Dates: start: 201508, end: 20150828
  17. IMUREL [Concomitant]
     Active Substance: AZATHIOPRINE SODIUM

REACTIONS (2)
  - Drug eruption [Recovered/Resolved]
  - Dermatitis bullous [Recovered/Resolved]

NARRATIVE: CASE EVENT DATE: 20150824
